FAERS Safety Report 12389869 (Version 2)
Quarter: 2016Q2

REPORT INFORMATION
  Report Type: Report from Study
  Country: US (occurrence: US)
  Receive Date: 20160520
  Receipt Date: 20160531
  Transmission Date: 20160815
  Serious: Yes (Hospitalization)
  Sender: FDA-Public Use
  Company Number: US-ABBVIE-16K-163-1628607-00

PATIENT
  Age: 43 Year
  Sex: Male

DRUGS (2)
  1. FLAGYL [Concomitant]
     Active Substance: METRONIDAZOLE\METRONIDAZOLE HYDROCHLORIDE
     Indication: URINARY TRACT INFECTION
     Route: 048
     Dates: start: 20160519
  2. HUMIRA [Suspect]
     Active Substance: ADALIMUMAB
     Indication: PSORIASIS
     Route: 058
     Dates: start: 20160415

REACTIONS (7)
  - Hepatomegaly [Recovering/Resolving]
  - Psoriasis [Not Recovered/Not Resolved]
  - Sepsis [Unknown]
  - Urinary tract infection [Recovering/Resolving]
  - Seizure [Unknown]
  - Chills [Recovering/Resolving]
  - Diarrhoea [Recovering/Resolving]

NARRATIVE: CASE EVENT DATE: 20160510
